FAERS Safety Report 6478176-4 (Version None)
Quarter: 2009Q4

REPORT INFORMATION
  Report Type: 
  Country: None (occurrence: None)
  Receive Date: 20091207
  Receipt Date: 20091203
  Transmission Date: 20100525
  Serious: Yes (Hospitalization, Other)
  Sender: FDA-Public Use
  Company Number: US-B.I. PHARMACEUTICALS,INC./RIDGEFIELD-2009-BP-14002BP

PATIENT
  Sex: Female

DRUGS (3)
  1. SPIRIVA [Suspect]
     Indication: EMPHYSEMA
     Dosage: 18 MCG
     Route: 055
     Dates: start: 20071201
  2. FORADIL [Concomitant]
  3. ASMANEX TWISTHALER [Concomitant]

REACTIONS (5)
  - BRONCHIAL DISORDER [None]
  - CERVIX CARCINOMA [None]
  - CONDITION AGGRAVATED [None]
  - EMPHYSEMA [None]
  - INCREASED UPPER AIRWAY SECRETION [None]
